FAERS Safety Report 14196966 (Version 1)
Quarter: 2017Q4

REPORT INFORMATION
  Report Type: Spontaneous
  Country: DE (occurrence: DE)
  Receive Date: 20171116
  Receipt Date: 20171116
  Transmission Date: 20180321
  Serious: Yes (Hospitalization)
  Sender: FDA-Public Use
  Company Number: DE-SA-2017SA216742

PATIENT
  Age: 59 Year
  Sex: Male

DRUGS (6)
  1. HEPARIN [Suspect]
     Active Substance: HEPARIN SODIUM
     Indication: THROMBOSIS PROPHYLAXIS
     Route: 040
  2. ENOXAPARIN SODIUM. [Suspect]
     Active Substance: ENOXAPARIN SODIUM
     Indication: ANTIPLATELET THERAPY
     Route: 065
  3. HEPARIN [Suspect]
     Active Substance: HEPARIN SODIUM
     Indication: THROMBOSIS PROPHYLAXIS
     Route: 040
  4. ENOXAPARIN SODIUM. [Suspect]
     Active Substance: ENOXAPARIN SODIUM
     Indication: THROMBOSIS PROPHYLAXIS
     Route: 065
  5. HEPARIN [Suspect]
     Active Substance: HEPARIN SODIUM
     Indication: ANTIPLATELET THERAPY
     Route: 040
  6. HEPARIN [Suspect]
     Active Substance: HEPARIN SODIUM
     Indication: ANTIPLATELET THERAPY
     Route: 040

REACTIONS (2)
  - Heparin-induced thrombocytopenia [Recovered/Resolved]
  - Vascular stent thrombosis [Recovered/Resolved]
